FAERS Safety Report 9307415 (Version 1)
Quarter: 2013Q2

REPORT INFORMATION
  Report Type: Spontaneous
  Country: US (occurrence: US)
  Receive Date: 20130524
  Receipt Date: 20130524
  Transmission Date: 20140414
  Serious: No
  Sender: FDA-Public Use
  Company Number: US-JNJFOC-20130515165

PATIENT
  Age: 67 Year
  Sex: Female
  Weight: 93.9 kg

DRUGS (8)
  1. FENTANYL TRANSDERMAL SYSTEM [Suspect]
     Indication: PAIN
     Route: 062
     Dates: start: 20130329, end: 201303
  2. METFORMIN [Concomitant]
     Indication: DIABETES MELLITUS
     Route: 065
  3. NORVASC [Concomitant]
     Indication: HYPERTENSION
     Route: 065
  4. ZOCOR [Concomitant]
     Indication: BLOOD CHOLESTEROL INCREASED
     Route: 065
  5. ASPIRIN [Concomitant]
     Route: 065
  6. GABAPENTIN [Concomitant]
     Indication: NEUROPATHY PERIPHERAL
     Route: 065
  7. SPIRONOLACTONE [Concomitant]
     Indication: HAIR GROWTH ABNORMAL
     Route: 065
  8. NORCO [Concomitant]
     Indication: PAIN
     Route: 065

REACTIONS (2)
  - Drug dose omission [Unknown]
  - Drug diversion [Unknown]
